FAERS Safety Report 5089723-1 (Version None)
Quarter: 2006Q3

REPORT INFORMATION
  Report Type: 
  Country: None (occurrence: None)
  Receive Date: 20060828
  Receipt Date: 20060811
  Transmission Date: 20061208
  Serious: Yes (Death, Hospitalization)
  Sender: FDA-Public Use
  Company Number: PHBS2006DE12201

PATIENT
  Age: 22 Year
  Sex: Female

DRUGS (2)
  1. KEPPRA [Suspect]
     Indication: CONVULSION
     Dosage: 1000 MG/DAY
     Route: 065
  2. TEGRETOL [Suspect]
     Indication: CONVULSION
     Dosage: 1000 MG/DAY
     Route: 065

REACTIONS (15)
  - ACIDOSIS [None]
  - CONVULSION [None]
  - FALL [None]
  - HEMIPARESIS [None]
  - HEPATIC FAILURE [None]
  - HEPATIC NECROSIS [None]
  - HEPATOCELLULAR DAMAGE [None]
  - HYPOTENSION [None]
  - PULMONARY OEDEMA [None]
  - PYREXIA [None]
  - RENAL FAILURE [None]
  - RENAL TUBULAR NECROSIS [None]
  - RESTLESSNESS [None]
  - SHOCK [None]
  - TACHYCARDIA [None]
